FAERS Safety Report 24700450 (Version 1)
Quarter: 2024Q4

REPORT INFORMATION
  Report Type: Spontaneous
  Country: ES (occurrence: ES)
  Receive Date: 20241205
  Receipt Date: 20241205
  Transmission Date: 20250114
  Serious: Yes (Hospitalization)
  Sender: NOVITIUM PHARMA
  Company Number: ES-NOVITIUMPHARMA-2024ESNVP02748

PATIENT
  Age: 55 Year
  Sex: Male

DRUGS (4)
  1. PREDNISONE [Suspect]
     Active Substance: PREDNISONE
     Indication: COVID-19
  2. MYCOPHENOLIC ACID [Concomitant]
     Active Substance: MYCOPHENOLIC ACID
     Indication: COVID-19
     Dosage: EVERY 12H
     Dates: start: 202212
  3. REMDESIVIR [Concomitant]
     Active Substance: REMDESIVIR
     Indication: COVID-19
     Dates: start: 202301
  4. PLITIDEPSIN [Concomitant]
     Active Substance: PLITIDEPSIN
     Indication: COVID-19
     Dosage: FOR 3 DAYS
     Dates: start: 202303

REACTIONS (2)
  - Off label use [Unknown]
  - Rebound effect [Unknown]
